FAERS Safety Report 14241213 (Version 3)
Quarter: 2023Q4

REPORT INFORMATION
  Report Type: Report from Study
  Country: CN (occurrence: CN)
  Receive Date: 20171130
  Receipt Date: 20231102
  Transmission Date: 20240110
  Serious: Yes (Hospitalization)
  Sender: FDA-Public Use
  Company Number: CN-KYOWAKIRIN-2017WRD-REG000943

PATIENT
  Age: 48 Year
  Sex: Male

DRUGS (12)
  1. CINACALCET HYDROCHLORIDE [Suspect]
     Active Substance: CINACALCET HYDROCHLORIDE
     Indication: Hyperparathyroidism secondary
     Dosage: 25 MILLIGRAM, QD
     Route: 048
     Dates: start: 20170811, end: 20170912
  2. CINACALCET HYDROCHLORIDE [Suspect]
     Active Substance: CINACALCET HYDROCHLORIDE
     Dosage: 50 MILLIGRAM, QD
     Route: 048
     Dates: start: 20170913
  3. CELLCEPT [Concomitant]
     Active Substance: MYCOPHENOLATE MOFETIL
     Dosage: 750 MG, BID
     Route: 048
     Dates: start: 20150316
  4. PROGRAF [Concomitant]
     Active Substance: TACROLIMUS
     Dosage: 1.5 MG, BID
     Route: 048
     Dates: start: 20120321
  5. PLAVIX [Concomitant]
     Active Substance: CLOPIDOGREL BISULFATE
     Dosage: 75 MG, QD
     Route: 048
     Dates: start: 20130124
  6. NORVASC [Concomitant]
     Active Substance: AMLODIPINE BESYLATE
     Indication: Hypertension
     Dosage: 5 MG, BID
     Route: 048
     Dates: start: 20140816
  7. BISOPROLOL FUMARATE [Concomitant]
     Active Substance: BISOPROLOL FUMARATE
     Indication: Hypertension
     Dosage: 5 MG, BID
     Route: 048
     Dates: start: 20170213
  8. DIOVAN [Concomitant]
     Active Substance: VALSARTAN
     Indication: Hypertension
     Dosage: 80 MG, BID
     Route: 065
     Dates: start: 20170213
  9. DOXAZOSIN MESYLATE [Concomitant]
     Active Substance: DOXAZOSIN MESYLATE
     Indication: Hypertension
     Dosage: 4 MG, BID
     Route: 065
     Dates: start: 20170213
  10. ROCALTROL [Concomitant]
     Active Substance: CALCITRIOL
     Indication: Massage
     Dosage: 0.5 MUG, QD
     Route: 048
     Dates: start: 20171011
  11. YI BEI [Concomitant]
     Indication: Nephrogenic anaemia
     Dosage: 10000 UNIT, 3 TIMES/WK
     Route: 042
     Dates: start: 20160120
  12. ENOXAPARIN SODIUM [Concomitant]
     Active Substance: ENOXAPARIN SODIUM
     Dosage: 0.4ML, TIW
     Route: 048
     Dates: start: 20150720

REACTIONS (1)
  - Pleurisy [Unknown]

NARRATIVE: CASE EVENT DATE: 20171113
